FAERS Safety Report 15056522 (Version 4)
Quarter: 2018Q3

REPORT INFORMATION
  Report Type: Report from Study
  Country: CN (occurrence: CN)
  Receive Date: 20180623
  Receipt Date: 20180922
  Transmission Date: 20181010
  Serious: Yes (Death, Other)
  Sender: FDA-Public Use
  Company Number: CN-ROCHE-2144168

PATIENT
  Sex: Male
  Weight: 66 kg

DRUGS (1)
  1. AVASTIN [Suspect]
     Active Substance: BEVACIZUMAB
     Indication: COLON CANCER
     Route: 041
     Dates: start: 20170626

REACTIONS (5)
  - Intestinal obstruction [Unknown]
  - Haematochezia [Unknown]
  - Haematochezia [Fatal]
  - Diarrhoea [Unknown]
  - General physical health deterioration [Fatal]
